FAERS Safety Report 9602432 (Version 1)
Quarter: 2013Q4

REPORT INFORMATION
  Report Type: Spontaneous
  Country: IT (occurrence: IT)
  Receive Date: 20131007
  Receipt Date: 20131007
  Transmission Date: 20140711
  Serious: Yes (Hospitalization)
  Sender: FDA-Public Use
  Company Number: IT-JNJFOC-20131000934

PATIENT
  Age: 48 Year
  Sex: Female

DRUGS (1)
  1. VERMOX [Suspect]
     Indication: TAENIASIS
     Route: 048
     Dates: start: 20130708, end: 20130709

REACTIONS (3)
  - Asthenia [Recovering/Resolving]
  - Dyspnoea [Recovering/Resolving]
  - Hyperhidrosis [Recovering/Resolving]
